FAERS Safety Report 5549891-1 (Version None)
Quarter: 2007Q4

REPORT INFORMATION
  Report Type: 
  Country: None (occurrence: None)
  Receive Date: 20071212
  Receipt Date: 20071210
  Transmission Date: 20080405
  Serious: Yes (Other)
  Sender: FDA-Public Use
  Company Number: PT-BRISTOL-MYERS SQUIBB COMPANY-14001655

PATIENT
  Age: 53 Year
  Sex: Male

DRUGS (16)
  1. METHOTREXATE [Suspect]
  2. CARBOPLATIN [Suspect]
  3. ETOPOSIDE [Suspect]
  4. ENALAPRIL [Suspect]
  5. SULFAMETHOXAZOLE AND TRIMETHOPRIM [Suspect]
  6. CYTARABINE [Suspect]
  7. IDARUBICIN HCL [Suspect]
  8. FLUDARABINE [Suspect]
  9. BUSULFAN [Suspect]
  10. CYCLOSPORINE [Suspect]
     Dosage: 50 MG EVERY 12 HOURS PROGRESSIVELY TAPRED
  11. PREDNISOLONE [Suspect]
     Dosage: 30 MG EVERY OTHER DAY PROGRESSIVELY TAPRED
  12. BISOPROLOL [Suspect]
  13. ACYCLOVIR [Suspect]
  14. MIANSERIN [Suspect]
  15. FOLATE [Suspect]
  16. MAGNESIUM [Suspect]

REACTIONS (7)
  - ACUTE GRAFT VERSUS HOST DISEASE [None]
  - CYTOMEGALOVIRUS INFECTION [None]
  - DIPLOPIA [None]
  - EMBOLISM VENOUS [None]
  - MENINGIOMA [None]
  - NEPHROTIC SYNDROME [None]
  - RENAL TUBULAR NECROSIS [None]
